FAERS Safety Report 5503417-7 (Version None)
Quarter: 2007Q4

REPORT INFORMATION
  Report Type: 
  Country: None (occurrence: None)
  Receive Date: 20071031
  Receipt Date: 20071023
  Transmission Date: 20080405
  Serious: Yes (Other)
  Sender: FDA-Public Use
  Company Number: JP-PFIZER INC-2007086916

PATIENT
  Age: 3 Year
  Sex: Male

DRUGS (7)
  1. ZITHROMAX [Suspect]
     Indication: INFECTION
     Dosage: DAILY DOSE:130MG
     Dates: start: 20071010, end: 20071012
  2. RINDERON [Concomitant]
     Route: 048
  3. MEPTIN [Concomitant]
  4. ASVERIN [Concomitant]
     Route: 048
  5. MUCODYNE [Concomitant]
     Route: 048
  6. ONON [Concomitant]
     Route: 048
  7. ANHIBA [Concomitant]

REACTIONS (2)
  - BLADDER DISTENSION [None]
  - URINARY RETENTION [None]
